FAERS Safety Report 11762740 (Version 1)
Quarter: 2015Q4

REPORT INFORMATION
  Report Type: Report from Study
  Country: US (occurrence: US)
  Receive Date: 20151120
  Receipt Date: 20151120
  Transmission Date: 20160304
  Serious: Yes (Other)
  Sender: FDA-Public Use
  Company Number: US-BRISTOL-MYERS SQUIBB COMPANY-13996368

PATIENT
  Age: 30 Year
  Sex: Female

DRUGS (3)
  1. ATAZANAVIR SULFATE [Suspect]
     Active Substance: ATAZANAVIR SULFATE
     Indication: HIV INFECTION
     Dosage: 300 MG, QD
     Route: 048
  2. NORVIR [Concomitant]
     Active Substance: RITONAVIR
     Indication: HIV INFECTION
     Dosage: 100 MG, QD
     Route: 048
  3. TRUVADA [Concomitant]
     Active Substance: EMTRICITABINE\TENOFOVIR DISOPROXIL FUMARATE
     Indication: HIV INFECTION
     Dosage: 1 DF, QD
     Route: 048

REACTIONS (8)
  - Stillbirth [Unknown]
  - Endometritis [Unknown]
  - Caesarean section [Unknown]
  - Amniotic cavity infection [Unknown]
  - Pregnancy [Recovered/Resolved]
  - Urosepsis [Unknown]
  - Placental infarction [Unknown]
  - Funisitis [Unknown]

NARRATIVE: CASE EVENT DATE: 20070912
